FAERS Safety Report 8551077-3 (Version None)
Quarter: 2012Q3

REPORT INFORMATION
  Report Type: 
  Country: None (occurrence: None)
  Receive Date: 20120730
  Receipt Date: 20110810
  Transmission Date: 20120928
  Serious: No
  Sender: FDA-Public Use
  Company Number: US-ALLERGAN-1110789US

PATIENT
  Age: 70 Year
  Sex: Female

DRUGS (3)
  1. LATISSE [Suspect]
     Dosage: UNK
     Route: 061
     Dates: start: 20110401, end: 20110801
  2. OTC EYE DROPS LIKE VISINE OR TEAR DROPS [Concomitant]
     Dosage: UNK
     Route: 047
  3. LATISSE [Suspect]
     Indication: GROWTH OF EYELASHES
     Dosage: UNK
     Route: 061
     Dates: start: 20110809

REACTIONS (2)
  - SKIN HYPERPIGMENTATION [None]
  - WRONG TECHNIQUE IN DRUG USAGE PROCESS [None]
